FAERS Safety Report 23279036 (Version 1)
Quarter: 2023Q4

REPORT INFORMATION
  Report Type: Spontaneous
  Country: CN (occurrence: CN)
  Receive Date: 20231209
  Receipt Date: 20231209
  Transmission Date: 20240109
  Serious: Yes (Other)
  Sender: FDA-Public Use
  Company Number: CN-SUN PHARMACEUTICAL INDUSTRIES LTD-2023R1-422932

PATIENT
  Age: 35 Year
  Sex: Female

DRUGS (5)
  1. VANCOMYCIN HYDROCHLORIDE [Suspect]
     Active Substance: VANCOMYCIN HYDROCHLORIDE
     Indication: Cough
     Dosage: UNK (1 G EVERY 12 H)
     Route: 042
  2. VANCOMYCIN HYDROCHLORIDE [Suspect]
     Active Substance: VANCOMYCIN HYDROCHLORIDE
     Indication: Sputum increased
  3. MEROPENEM [Suspect]
     Active Substance: MEROPENEM
     Indication: Cough
     Dosage: UNK (1 G Q8H)
     Route: 065
  4. MEROPENEM [Suspect]
     Active Substance: MEROPENEM
     Indication: Sputum increased
  5. ACETAMINOPHEN [Suspect]
     Active Substance: ACETAMINOPHEN
     Indication: Pyrexia
     Dosage: UNK
     Route: 048

REACTIONS (6)
  - Exposure during pregnancy [Unknown]
  - Respiratory failure [Recovering/Resolving]
  - Oligohydramnios [Recovering/Resolving]
  - Premature delivery [Unknown]
  - Electrolyte imbalance [Recovering/Resolving]
  - Hypoproteinaemia [Recovering/Resolving]
